FAERS Safety Report 20461247 (Version 2)
Quarter: 2022Q1

REPORT INFORMATION
  Report Type: Spontaneous
  Country: RU (occurrence: RU)
  Receive Date: 20220211
  Receipt Date: 20220215
  Transmission Date: 20220423
  Serious: No
  Sender: FDA-Public Use
  Company Number: RU-ORGANON-O2202RUS000547

PATIENT
  Age: 5 Year
  Sex: Male

DRUGS (2)
  1. NASONEX [Suspect]
     Active Substance: MOMETASONE FUROATE
     Indication: Adenoiditis
     Dosage: UNK
  2. NASONEX [Suspect]
     Active Substance: MOMETASONE FUROATE
     Indication: Adenoidal hypertrophy

REACTIONS (2)
  - Erythema [Unknown]
  - Product use in unapproved indication [Unknown]
